FAERS Safety Report 13402300 (Version 3)
Quarter: 2017Q2

REPORT INFORMATION
  Report Type: Spontaneous
  Country: FR (occurrence: FR)
  Receive Date: 20170404
  Receipt Date: 20170526
  Transmission Date: 20170830
  Serious: Yes (Death, Congenital Anomaly)
  Sender: FDA-Public Use
  Company Number: FR-ABBVIE-17K-056-1931242-00

PATIENT

DRUGS (1)
  1. HUMIRA [Suspect]
     Active Substance: ADALIMUMAB
     Indication: MATERNAL EXPOSURE TIMING UNSPECIFIED
     Route: 064
     Dates: start: 20150903, end: 20160915

REACTIONS (6)
  - Cerebral ventricle dilatation [Fatal]
  - Foetal disorder [Fatal]
  - Thanatophoric dwarfism [Fatal]
  - Foetal malformation [Fatal]
  - Foetal exposure during pregnancy [Unknown]
  - Cardiac septal defect [Fatal]
